FAERS Safety Report 16212338 (Version 1)
Quarter: 2019Q2

REPORT INFORMATION
  Report Type: Spontaneous
  Country: US (occurrence: US)
  Receive Date: 20190418
  Receipt Date: 20190418
  Transmission Date: 20190711
  Serious: Yes (Other)
  Sender: FDA-Public Use
  Company Number: US-PFIZER INC-2019160295

PATIENT
  Age: 61 Year
  Sex: Female
  Weight: 92.53 kg

DRUGS (2)
  1. LYRICA [Suspect]
     Active Substance: PREGABALIN
     Indication: HYPOAESTHESIA
     Dosage: 75 MG, 2X/DAY (ONCE EVERY 12 HOURS)
     Route: 048
     Dates: start: 2009
  2. LYRICA [Suspect]
     Active Substance: PREGABALIN
     Indication: PAIN
     Dosage: 75 MG, 4X/DAY (EVERY 6 HOURS, MORNING, MID-DAY, EVENING AND BED-TIME)
     Route: 048
     Dates: start: 2009, end: 20190404

REACTIONS (6)
  - Drug ineffective [Unknown]
  - Weight decreased [Unknown]
  - Feeling abnormal [Unknown]
  - Loss of consciousness [Unknown]
  - Hypertension [Unknown]
  - Product use issue [Unknown]

NARRATIVE: CASE EVENT DATE: 20190117
